FAERS Safety Report 10182644 (Version 1)
Quarter: 2014Q2

REPORT INFORMATION
  Report Type: Spontaneous
  Country: US (occurrence: None)
  Receive Date: 20140519
  Receipt Date: 20140519
  Transmission Date: 20141212
  Serious: Yes (Disabling)
  Sender: FDA-Public Use
  Company Number: None

PATIENT
  Age: 70 Year
  Sex: Female
  Weight: 118.84 kg

DRUGS (1)
  1. RESTASIS 0.05% [Suspect]
     Indication: DRY EYE
     Dosage: 1 GTT., TWICE DAILY, INTO THE EYE?
     Dates: start: 20130511, end: 20140512

REACTIONS (3)
  - Diplopia [None]
  - Visual acuity reduced [None]
  - Retinal disorder [None]
